FAERS Safety Report 6296758-X (Version None)
Quarter: 2009Q3

REPORT INFORMATION
  Report Type: 
  Country: None (occurrence: None)
  Receive Date: 20090804
  Receipt Date: 20081120
  Transmission Date: 20100115
  Serious: No
  Sender: FDA-Public Use
  Company Number: US-BRISTOL-MYERS SQUIBB COMPANY-14159297

PATIENT
  Age: 68 Year
  Sex: Male

DRUGS (19)
  1. TEQUIN [Suspect]
  2. ALLOPURINOL [Concomitant]
  3. PIOGLITAZONE HCL [Concomitant]
  4. NITROSTAT [Concomitant]
  5. MECLIZINE [Concomitant]
  6. VITAMIN B COMPLEX CAP [Concomitant]
  7. TOCOPHEROL ACETATE [Concomitant]
  8. FLUTICASONE PROPIONATE [Concomitant]
  9. AMIODARONE HCL [Concomitant]
  10. HYZAAR [Concomitant]
  11. TRIAMTERENE [Concomitant]
  12. ISOSORBIDE MONONITRATE [Concomitant]
  13. HYDROCHLOROTHIAZIDE [Concomitant]
  14. HUMULIN R [Concomitant]
  15. RESTORIL [Concomitant]
  16. SULFA [Concomitant]
  17. METRONIDAZOLE [Concomitant]
  18. POTASSIUM CHLORIDE [Concomitant]
  19. PHOSPHORUS-32 [Concomitant]

REACTIONS (2)
  - NAUSEA [None]
  - VOMITING [None]
